FAERS Safety Report 7367342-1 (Version None)
Quarter: 2011Q1

REPORT INFORMATION
  Report Type: 
  Country: None (occurrence: None)
  Receive Date: 20110317
  Receipt Date: 20110317
  Transmission Date: 20110831
  Serious: No
  Sender: FDA-Public Use
  Company Number: None

PATIENT
  Sex: Female
  Weight: 58.9676 kg

DRUGS (1)
  1. SMITH + NEPHEW ALCOHOL SWABS TRIAD GROUP [Suspect]
     Dosage: USE EVERY 3 DAYS

REACTIONS (3)
  - FATIGUE [None]
  - MALAISE [None]
  - HYPERHIDROSIS [None]
